FAERS Safety Report 16823566 (Version 2)
Quarter: 2019Q4

REPORT INFORMATION
  Report Type: Spontaneous
  Country: US (occurrence: US)
  Receive Date: 20190918
  Receipt Date: 20191217
  Transmission Date: 20200122
  Serious: No
  Sender: FDA-Public Use
  Company Number: US-PFIZER INC-2018108083

PATIENT
  Age: 79 Year
  Sex: Female
  Weight: 88 kg

DRUGS (16)
  1. BABY ASPIRIN [Concomitant]
     Active Substance: ASPIRIN
     Indication: CARDIOVASCULAR DISORDER
     Dosage: 81 MG, 1X/DAY (NIGHT)
  2. TRIAMTERENE. [Concomitant]
     Active Substance: TRIAMTERENE
     Indication: DIURETIC THERAPY
     Dosage: 75 MG, 1X/DAY (MORNING)
  3. LOVASTATIN. [Concomitant]
     Active Substance: LOVASTATIN
     Indication: BLOOD CHOLESTEROL ABNORMAL
     Dosage: 40 MG, 1X/DAY (MORNING)
  4. KLOR-CON [Concomitant]
     Active Substance: POTASSIUM CHLORIDE
     Dosage: UNK UNK, 2X/DAY (10 MEG)(MORNING, NIGHT)
  5. ACTONEL [Concomitant]
     Active Substance: RISEDRONATE SODIUM
     Indication: OSTEOPOROSIS
     Dosage: 150 MG, 1X/DAY (MORNING)
  6. GARLIC. [Concomitant]
     Active Substance: GARLIC
     Indication: BLOOD CHOLESTEROL ABNORMAL
     Dosage: 1000 MG, 1X/DAY (MORNING)
  7. CALCIUM +VIT D [Concomitant]
     Active Substance: CALCIUM\VITAMIN D
     Indication: BONE DENSITY ABNORMAL
     Dosage: 500 MG, 1X/DAY (MORNING)
  8. FISH OIL [Concomitant]
     Active Substance: FISH OIL
     Dosage: 1000 MG, 1X/DAY (NIGHT)
  9. LEXAPRO [Concomitant]
     Active Substance: ESCITALOPRAM OXALATE
     Indication: DEPRESSION
     Dosage: 20 MG, AS NEEDED (WHEN NEEDED/MORNING, NIGHT)
  10. TRIAMTERENE. [Concomitant]
     Active Substance: TRIAMTERENE
     Indication: BLOOD PRESSURE ABNORMAL
  11. ATENOLOL. [Concomitant]
     Active Substance: ATENOLOL
     Indication: BLOOD PRESSURE ABNORMAL
     Dosage: 25 MG, 1X/DAY (NIGHT)
  12. OMEPRAZOLE. [Concomitant]
     Active Substance: OMEPRAZOLE
     Indication: GASTROOESOPHAGEAL REFLUX DISEASE
     Dosage: 40 MG, 1X/DAY (NIGHT)
  13. LEVOTHYROXINE. [Concomitant]
     Active Substance: LEVOTHYROXINE
     Indication: THYROID DISORDER
     Dosage: 88 MG, 1X/DAY (MORNING)
  14. LYRICA [Suspect]
     Active Substance: PREGABALIN
     Indication: NEUROPATHY PERIPHERAL
     Dosage: 300 MG, 2X/DAY (MORNING AND NIGHT)
     Route: 048
  15. LYRICA [Suspect]
     Active Substance: PREGABALIN
     Indication: PAIN
     Dosage: 75 MG, 2X/DAY
     Route: 048
  16. XANAX [Concomitant]
     Active Substance: ALPRAZOLAM
     Indication: ANXIETY
     Dosage: UNK UNK, AS NEEDED, (0.25 WHEN NEEDED) (MORNING)

REACTIONS (1)
  - Thinking abnormal [Not Recovered/Not Resolved]

NARRATIVE: CASE EVENT DATE: 201903
